FAERS Safety Report 20924194 (Version 1)
Quarter: 2022Q2

REPORT INFORMATION
  Report Type: Spontaneous
  Country: US (occurrence: US)
  Receive Date: 20220607
  Receipt Date: 20220607
  Transmission Date: 20220721
  Serious: Yes (Other)
  Sender: FDA-Public Use
  Company Number: US-PFIZER INC-202200790396

PATIENT
  Age: 70 Year
  Sex: Female

DRUGS (3)
  1. BORTEZOMIB [Suspect]
     Active Substance: BORTEZOMIB
     Dosage: UNK
     Dates: start: 202112
  2. SELINEXOR [Suspect]
     Active Substance: SELINEXOR
     Dosage: UNK
     Dates: start: 202112
  3. DEXAMETHASONE [Suspect]
     Active Substance: DEXAMETHASONE
     Dosage: UNK
     Dates: start: 202112

REACTIONS (3)
  - Neuropathy peripheral [Unknown]
  - Disease progression [Unknown]
  - Skin lesion [Unknown]
